FAERS Safety Report 7105174-X (Version None)
Quarter: 2010Q4

REPORT INFORMATION
  Report Type: 
  Country: None (occurrence: None)
  Receive Date: 20101116
  Receipt Date: 20101104
  Transmission Date: 20110411
  Serious: Yes (Hospitalization, Other)
  Sender: FDA-Public Use
  Company Number: JP-JNJFOC-20101102315

PATIENT
  Sex: Female

DRUGS (4)
  1. CRAVIT [Suspect]
     Indication: CELLULITIS
     Route: 048
  2. SOLETON [Suspect]
     Indication: CELLULITIS
     Route: 048
  3. PRONASE [Suspect]
     Indication: CELLULITIS
     Route: 048
  4. REBAMIPIDE [Suspect]
     Indication: CELLULITIS
     Route: 048

REACTIONS (2)
  - ANAPHYLACTIC SHOCK [None]
  - GENERALISED OEDEMA [None]
